FAERS Safety Report 5949492-7 (Version None)
Quarter: 2008Q4

REPORT INFORMATION
  Report Type: 
  Country: None (occurrence: None)
  Receive Date: 20081112
  Receipt Date: 20081104
  Transmission Date: 20090506
  Serious: Yes (Other)
  Sender: FDA-Public Use
  Company Number: PHHY2008GB27735

PATIENT

DRUGS (1)
  1. TEGRETOL [Suspect]
     Indication: EPILEPSY
     Dosage: 1000 MG, QD
     Route: 048

REACTIONS (2)
  - CONVULSION [None]
  - DYSPHAGIA [None]
